FAERS Safety Report 7269449-6 (Version None)
Quarter: 2011Q1

REPORT INFORMATION
  Report Type: 
  Country: None (occurrence: None)
  Receive Date: 20110202
  Receipt Date: 20110122
  Transmission Date: 20110831
  Serious: Yes (Hospitalization)
  Sender: FDA-Public Use
  Company Number: SA-NOVOPROD-316004

PATIENT
  Age: 41 Year
  Sex: Female
  Weight: 94.5 kg

DRUGS (3)
  1. FEROGLOBIN                         /01593001/ [Concomitant]
     Dosage: CAPS
  2. NOVOMIX 30 [Suspect]
     Indication: GESTATIONAL DIABETES
     Dosage: 36 IU, QD
     Route: 058
     Dates: start: 20100608, end: 20100804
  3. OSTEOCARE [Concomitant]
     Dosage: TABS
     Route: 048

REACTIONS (5)
  - DRUG EXPOSURE DURING PREGNANCY [None]
  - URINARY TRACT INFECTION [None]
  - PRE-ECLAMPSIA [None]
  - INTRA-UTERINE DEATH [None]
  - BLOOD GLUCOSE INCREASED [None]
